FAERS Safety Report 5358439-6 (Version None)
Quarter: 2007Q2

REPORT INFORMATION
  Report Type: 
  Country: None (occurrence: None)
  Receive Date: 20070531
  Receipt Date: 20070321
  Transmission Date: 20071010
  Serious: No
  Sender: FDA-Public Use
  Company Number: 2007MP000150

PATIENT
  Age: 72 Year
  Sex: Male
  Weight: 83.4619 kg

DRUGS (6)
  1. DACOGEN [Suspect]
     Indication: MYELODYSPLASTIC SYNDROME
     Dosage: 40 MG;QD;IV
     Route: 042
     Dates: start: 20070201, end: 20070201
  2. HYDROXYUREA [Concomitant]
  3. ALLOPURINOL [Concomitant]
  4. EFFEXOR [Concomitant]
  5. CLONAZEPAM [Concomitant]
  6. LISINOPRIL [Concomitant]

REACTIONS (3)
  - BLOOD BLISTER [None]
  - OFF LABEL USE [None]
  - RASH [None]
